FAERS Safety Report 8192063-5 (Version None)
Quarter: 2012Q1

REPORT INFORMATION
  Report Type: 
  Country: None (occurrence: None)
  Receive Date: 20120307
  Receipt Date: 20120305
  Transmission Date: 20120608
  Serious: Yes (Death)
  Sender: FDA-Public Use
  Company Number: PHEH2012US005075

PATIENT
  Sex: Female

DRUGS (5)
  1. RECLAST [Suspect]
     Route: 042
     Dates: start: 20110503
  2. LOVENOX [Concomitant]
     Route: 058
  3. RECLAST [Suspect]
     Dosage: UNK
     Route: 042
     Dates: start: 20100401
  4. METHYLPREDNISOLONE [Concomitant]
  5. RECLAST [Suspect]
     Route: 042
     Dates: start: 20090301

REACTIONS (4)
  - GENERAL PHYSICAL HEALTH DETERIORATION [None]
  - DEATH [None]
  - FAILURE TO THRIVE [None]
  - APHAGIA [None]
